FAERS Safety Report 21550534 (Version 1)
Quarter: 2022Q4

REPORT INFORMATION
  Report Type: Spontaneous
  Country: FR (occurrence: None)
  Receive Date: 20221103
  Receipt Date: 20221103
  Transmission Date: 20230113
  Serious: Yes (Other)
  Sender: FDA-Public Use
  Company Number: 2022A359483

PATIENT
  Age: 680 Month
  Sex: Male

DRUGS (2)
  1. LYNPARZA [Suspect]
     Active Substance: OLAPARIB
     Indication: Pancreatic carcinoma
     Dosage: 150.0MG UNKNOWN
     Route: 048
     Dates: start: 202201, end: 202207
  2. GEMCITABINE [Concomitant]
     Active Substance: GEMCITABINE
     Dosage: THIRD LINE TREATMENT

REACTIONS (1)
  - Malignant neoplasm progression [Unknown]

NARRATIVE: CASE EVENT DATE: 20220701
